FAERS Safety Report 8085845-1 (Version None)
Quarter: 2012Q1

REPORT INFORMATION
  Report Type: 
  Country: None (occurrence: None)
  Receive Date: 20120128
  Receipt Date: 20110414
  Transmission Date: 20120608
  Serious: No
  Sender: FDA-Public Use
  Company Number: US-ABBOTT-11P-163-0720065-00

PATIENT
  Sex: Female
  Weight: 61.29 kg

DRUGS (5)
  1. HUMIRA [Suspect]
     Indication: CROHN'S DISEASE
     Dates: start: 20101201
  2. BENADRYL [Suspect]
  3. ENTOCORT EC [Concomitant]
     Indication: CROHN'S DISEASE
  4. BENADRYL [Suspect]
     Indication: PRODUCT USED FOR UNKNOWN INDICATION
     Dates: start: 20110411
  5. IMURAN [Concomitant]
     Indication: CROHN'S DISEASE

REACTIONS (8)
  - INJECTION SITE ERYTHEMA [None]
  - DYSPNOEA [None]
  - HEADACHE [None]
  - INJECTION SITE PAIN [None]
  - NAUSEA [None]
  - INJECTION SITE NODULE [None]
  - INJECTION SITE OEDEMA [None]
  - FATIGUE [None]
